FAERS Safety Report 10286660 (Version 2)
Quarter: 2014Q3

REPORT INFORMATION
  Report Type: Spontaneous
  Country: BR (occurrence: BR)
  Receive Date: 20140709
  Receipt Date: 20140918
  Transmission Date: 20150326
  Serious: Yes (Other)
  Sender: FDA-Public Use
  Company Number: BR-ASTRAZENECA-2014SE48790

PATIENT
  Age: 74 Year
  Sex: Female
  Weight: 60 kg

DRUGS (10)
  1. LIPITOR [Concomitant]
     Active Substance: ATORVASTATIN CALCIUM
     Indication: ANTICOAGULANT THERAPY
     Dosage: DAILY
     Route: 048
     Dates: start: 2002
  2. LIPLESS [Concomitant]
     Active Substance: CIPROFIBRATE
     Indication: BLOOD TRIGLYCERIDES ABNORMAL
     Route: 048
  3. SOMALGIN [Concomitant]
     Active Substance: ASPIRIN\DIHYDROXYALUMINUM AMINOACETATE ANHYDROUS\MAGNESIUM CARBONATE
     Indication: ANTICOAGULANT THERAPY
     Dosage: DAILY
     Route: 048
  4. DIOVAN [Concomitant]
     Active Substance: VALSARTAN
     Indication: HYPERTENSION
     Dosage: DAILY
     Route: 048
  5. ASA [Concomitant]
     Active Substance: ASPIRIN
     Indication: ANTICOAGULANT THERAPY
     Dosage: DAILY
     Route: 048
  6. NEXIUM [Suspect]
     Active Substance: ESOMEPRAZOLE MAGNESIUM
     Indication: GASTRITIS
     Route: 048
     Dates: start: 201404
  7. LIPITOR [Concomitant]
     Active Substance: ATORVASTATIN CALCIUM
     Indication: CORONARY ARTERY OCCLUSION
     Dosage: DAILY
     Route: 048
     Dates: start: 2002
  8. NEXIUM [Suspect]
     Active Substance: ESOMEPRAZOLE MAGNESIUM
     Indication: ULCER
     Route: 048
     Dates: start: 201404
  9. BRILINTA [Suspect]
     Active Substance: TICAGRELOR
     Route: 048
     Dates: start: 201407, end: 201407
  10. LIPLESS [Concomitant]
     Active Substance: CIPROFIBRATE
     Indication: ARTERIAL OCCLUSIVE DISEASE
     Route: 048

REACTIONS (3)
  - Coronary artery occlusion [Unknown]
  - Dyspnoea [Recovered/Resolved]
  - Memory impairment [Unknown]

NARRATIVE: CASE EVENT DATE: 201406
